FAERS Safety Report 25474340 (Version 1)
Quarter: 2025Q2

REPORT INFORMATION
  Report Type: Spontaneous
  Country: CN (occurrence: CN)
  Receive Date: 20250624
  Receipt Date: 20250624
  Transmission Date: 20250717
  Serious: Yes (Hospitalization)
  Sender: ABBVIE
  Company Number: CN-ABBVIE-6339836

PATIENT
  Age: 55 Year
  Sex: Male
  Weight: 90 kg

DRUGS (7)
  1. VENCLEXTA [Suspect]
     Active Substance: VENETOCLAX
     Indication: Symptomatic treatment
     Route: 048
     Dates: start: 20250607, end: 20250607
  2. VENCLEXTA [Suspect]
     Active Substance: VENETOCLAX
     Indication: Symptomatic treatment
     Route: 048
     Dates: start: 20250608, end: 20250608
  3. VENCLEXTA [Suspect]
     Active Substance: VENETOCLAX
     Indication: Symptomatic treatment
     Route: 048
     Dates: start: 20250609, end: 20250614
  4. IDARUBICIN HYDROCHLORIDE [Suspect]
     Active Substance: IDARUBICIN HYDROCHLORIDE
     Indication: Symptomatic treatment
     Dosage: DRIP
     Route: 042
     Dates: start: 20250607, end: 20250607
  5. IDARUBICIN HYDROCHLORIDE [Suspect]
     Active Substance: IDARUBICIN HYDROCHLORIDE
     Indication: Symptomatic treatment
     Dosage: DRIP
     Route: 042
     Dates: start: 20250609, end: 20250609
  6. CYTARABINE [Suspect]
     Active Substance: CYTARABINE
     Indication: Symptomatic treatment
     Dosage: DRIP
     Route: 042
     Dates: start: 20250613, end: 20250613
  7. CYTARABINE [Suspect]
     Active Substance: CYTARABINE
     Indication: Symptomatic treatment
     Dosage: DRIP
     Route: 042
     Dates: start: 20250606, end: 20250611

REACTIONS (1)
  - Myelosuppression [Not Recovered/Not Resolved]

NARRATIVE: CASE EVENT DATE: 20250610
